FAERS Safety Report 19293520 (Version 1)
Quarter: 2021Q2

REPORT INFORMATION
  Report Type: Spontaneous
  Country: US (occurrence: US)
  Receive Date: 20210524
  Receipt Date: 20210524
  Transmission Date: 20210717
  Serious: No
  Sender: FDA-Public Use
  Company Number: US-TEVA-2021-US-1911749

PATIENT
  Sex: Female

DRUGS (1)
  1. LISINOPRIL. [Suspect]
     Active Substance: LISINOPRIL
     Route: 065

REACTIONS (6)
  - Illness [Unknown]
  - Wrong product administered [Unknown]
  - Dyspnoea [Unknown]
  - Bedridden [Unknown]
  - Peripheral swelling [Unknown]
  - Gait inability [Unknown]
